FAERS Safety Report 16180759 (Version 2)
Quarter: 2019Q2

REPORT INFORMATION
  Report Type: Spontaneous
  Country: BR (occurrence: BR)
  Receive Date: 20190410
  Receipt Date: 20190617
  Transmission Date: 20190711
  Serious: Yes (Other)
  Sender: FDA-Public Use
  Company Number: BR-ABBVIE-19P-020-2736742-00

PATIENT
  Sex: Female

DRUGS (8)
  1. OMEGA 3 [Suspect]
     Active Substance: OMEGA-3 FATTY ACIDS
     Indication: PRODUCT USED FOR UNKNOWN INDICATION
     Route: 065
  2. HOMEOPATHICS NOS [Concomitant]
     Active Substance: HOMEOPATHICS
     Indication: BLOOD CHOLESTEROL ABNORMAL
  3. SYNTHROID [Suspect]
     Active Substance: LEVOTHYROXINE SODIUM
     Dosage: START DATE: 40 YEARS/ 30 YEARS/ OVER 20 YEARS (SHE COULD NOT SPECIFY)
     Route: 065
  4. SYNTHROID [Suspect]
     Active Substance: LEVOTHYROXINE SODIUM
     Route: 065
  5. DUPLOSTAT [Concomitant]
     Indication: LOW DENSITY LIPOPROTEIN
     Dosage: DAILY DOSE: 1600MG, DOSAGE: UNIT DOSE: 1 CAPSULE, MORNING/ NIGHT, AFTER DINNER.
  6. HERBAL EXTRACT NOS [Concomitant]
     Active Substance: HERBALS
     Indication: BLOOD CHOLESTEROL ABNORMAL
  7. SYNTHROID [Suspect]
     Active Substance: LEVOTHYROXINE SODIUM
     Indication: HYPOTHYROIDISM
     Dosage: DOSAGE: UNIT DOSE: 1 TABLET, MORNING, FASTING.
     Route: 048
  8. EVENING PRIMROSE OIL [Concomitant]
     Active Substance: EVENING PRIMROSE OIL\HERBALS
     Indication: PRODUCT USED FOR UNKNOWN INDICATION

REACTIONS (23)
  - Neoplasm [Recovered/Resolved]
  - Migraine [Recovered/Resolved]
  - Abdominal pain upper [Unknown]
  - Hypersensitivity [Unknown]
  - Drug titration error [Unknown]
  - Eating disorder [Unknown]
  - Weight decreased [Unknown]
  - Alopecia [Recovered/Resolved]
  - Vomiting [Unknown]
  - Feeling abnormal [Unknown]
  - Vessel perforation [Recovered/Resolved]
  - Hypoaesthesia [Recovered/Resolved]
  - Hot flush [Unknown]
  - Pruritus [Unknown]
  - Hormone level abnormal [Unknown]
  - Amenorrhoea [Unknown]
  - Nausea [Unknown]
  - Anaemia [Unknown]
  - Cold sweat [Unknown]
  - Leiomyoma [Recovered/Resolved]
  - Gastritis [Unknown]
  - Liver disorder [Recovered/Resolved]
  - Drug ineffective [Unknown]

NARRATIVE: CASE EVENT DATE: 2009
